FAERS Safety Report 17445946 (Version 2)
Quarter: 2020Q1

REPORT INFORMATION
  Report Type: Spontaneous
  Country: GB (occurrence: GB)
  Receive Date: 20200221
  Receipt Date: 20200227
  Transmission Date: 20200409
  Serious: Yes (Other)
  Sender: FDA-Public Use
  Company Number: NVSC2020GB047341

PATIENT
  Age: 42 Year

DRUGS (3)
  1. BUDESONIDE. [Suspect]
     Active Substance: BUDESONIDE
     Indication: ENTERITIS
     Dosage: UNK, MORE THAN 3MG PER DAY
     Route: 065
  2. BUDESONIDE. [Suspect]
     Active Substance: BUDESONIDE
     Indication: IMMUNODEFICIENCY COMMON VARIABLE
  3. PREDNISOLONE. [Suspect]
     Active Substance: PREDNISOLONE
     Indication: IMMUNODEFICIENCY COMMON VARIABLE
     Dosage: UNK, MORE THAN 7.5MG PER DAY
     Route: 065

REACTIONS (3)
  - Gastroenteritis norovirus [Recovered/Resolved]
  - Infection susceptibility increased [Unknown]
  - Off label use [Unknown]

NARRATIVE: CASE EVENT DATE: 201801
